FAERS Safety Report 9711711 (Version 1)
Quarter: 2013Q4

REPORT INFORMATION
  Report Type: Spontaneous
  Country: US (occurrence: US)
  Receive Date: 20131126
  Receipt Date: 20131126
  Transmission Date: 20140711
  Serious: No
  Sender: FDA-Public Use
  Company Number: US-BRISTOL-MYERS SQUIBB COMPANY-19098607

PATIENT
  Age: 69 Year
  Sex: Female

DRUGS (1)
  1. BYDUREON [Suspect]
     Route: 058
     Dates: start: 20130425, end: 20130701

REACTIONS (4)
  - Musculoskeletal chest pain [Unknown]
  - Oral discomfort [Unknown]
  - Glossodynia [Unknown]
  - Dysgeusia [Unknown]
